FAERS Safety Report 11232298 (Version 1)
Quarter: 2015Q2

REPORT INFORMATION
  Report Type: Spontaneous
  Country: US (occurrence: None)
  Receive Date: 20150617
  Receipt Date: 20150617
  Transmission Date: 20150821
  Serious: No
  Sender: FDA-Public Use
  Company Number: 2014TASUS000438

PATIENT
  Age: 70 Year
  Sex: Female
  Weight: 59 kg

DRUGS (5)
  1. HETLIOZ [Suspect]
     Active Substance: TASIMELTEON
     Indication: CIRCADIAN RHYTHM SLEEP DISORDER
     Dosage: QHS
     Route: 048
     Dates: start: 2014
  2. PROPRANOLOL (PROPRANOLOL HYDROCHLORIDE) [Concomitant]
  3. AMLODIPINE [Concomitant]
     Active Substance: AMLODIPINE BESYLATE
  4. SYNTHROID [Concomitant]
     Active Substance: LEVOTHYROXINE SODIUM
  5. VITAMINS NOS [Concomitant]
     Active Substance: VITAMINS

REACTIONS (3)
  - Anxiety [None]
  - Psychomotor hyperactivity [None]
  - Insomnia [None]

NARRATIVE: CASE EVENT DATE: 2014
